FAERS Safety Report 4926354-5 (Version None)
Quarter: 2006Q1

REPORT INFORMATION
  Report Type: 
  Country: None (occurrence: None)
  Receive Date: 20060228
  Receipt Date: 20051103
  Transmission Date: 20060701
  Serious: No
  Sender: FDA-Public Use
  Company Number: US-GLAXOSMITHKLINE-A0580822A

PATIENT
  Sex: Female
  Weight: 63.6 kg

DRUGS (3)
  1. LAMICTAL [Suspect]
     Indication: BIPOLAR II DISORDER
     Dosage: 175MG PER DAY
     Route: 048
     Dates: start: 20040701
  2. LEXAPRO [Suspect]
     Dosage: 5MG AT NIGHT
     Route: 048
  3. LEXAPRO [Concomitant]
     Route: 048
     Dates: end: 20040905

REACTIONS (3)
  - ORAL MUCOSAL BLISTERING [None]
  - PHOTOPSIA [None]
  - TOOTHACHE [None]
